FAERS Safety Report 6543920-4 (Version None)
Quarter: 2010Q1

REPORT INFORMATION
  Report Type: 
  Country: None (occurrence: None)
  Receive Date: 20100120
  Receipt Date: 20100118
  Transmission Date: 20100710
  Serious: Yes (Other)
  Sender: FDA-Public Use
  Company Number: TR-TEVA-221106ISR

PATIENT
  Age: 4 Year
  Sex: Female

DRUGS (6)
  1. METHOTREXATE [Suspect]
     Route: 037
  2. DAUNORUBICIN HCL [Concomitant]
  3. VINCRISTINE [Concomitant]
  4. CYTARABINE [Concomitant]
     Route: 037
  5. ASPARAGINASE [Concomitant]
  6. PREDNISOLONE [Concomitant]
     Route: 037

REACTIONS (2)
  - NEUROTOXICITY [None]
  - URINARY RETENTION [None]
